FAERS Safety Report 4483810-4 (Version None)
Quarter: 2004Q4

REPORT INFORMATION
  Report Type: 
  Country: None (occurrence: None)
  Receive Date: 20041025
  Receipt Date: 20041015
  Transmission Date: 20050328
  Serious: Yes (Hospitalization)
  Sender: FDA-Public Use
  Company Number: PHEH2004US11141

PATIENT
  Sex: Female

DRUGS (1)
  1. ZELNORM [Suspect]

REACTIONS (4)
  - CLOSTRIDIAL INFECTION [None]
  - CLOSTRIDIUM DIFFICILE TOXIN TEST [None]
  - DIARRHOEA [None]
  - EOSINOPHIL COUNT INCREASED [None]
